FAERS Safety Report 13240526 (Version 1)
Quarter: 2017Q1

REPORT INFORMATION
  Report Type: Spontaneous
  Country: US (occurrence: US)
  Receive Date: 20170216
  Receipt Date: 20170216
  Transmission Date: 20170428
  Serious: No
  Sender: FDA-Public Use
  Company Number: US-RELYPSA-RLY2016003587

PATIENT
  Age: 66 Year
  Sex: Female

DRUGS (8)
  1. LIPITOR [Concomitant]
     Active Substance: ATORVASTATIN CALCIUM
  2. LASIX [Concomitant]
     Active Substance: FUROSEMIDE
  3. HUMALOG [Concomitant]
     Active Substance: INSULIN LISPRO
  4. LISINOPRIL. [Concomitant]
     Active Substance: LISINOPRIL
  5. VELTASSA [Suspect]
     Active Substance: PATIROMER
     Indication: PRODUCT USED FOR UNKNOWN INDICATION
     Dosage: UNKNOWN
     Route: 065
     Dates: end: 20161212
  6. ISOSORBIDE. [Concomitant]
     Active Substance: ISOSORBIDE
  7. COREG [Concomitant]
     Active Substance: CARVEDILOL
  8. LANTUS [Concomitant]
     Active Substance: INSULIN GLARGINE

REACTIONS (4)
  - Gastrooesophageal reflux disease [Unknown]
  - Flatulence [Recovered/Resolved]
  - Frequent bowel movements [Recovered/Resolved]
  - Abnormal faeces [Recovered/Resolved]

NARRATIVE: CASE EVENT DATE: 201610
